FAERS Safety Report 12729613 (Version 1)
Quarter: 2016Q3

REPORT INFORMATION
  Report Type: Spontaneous
  Country: US (occurrence: US)
  Receive Date: 20160908
  Receipt Date: 20160908
  Transmission Date: 20161109
  Serious: Yes (Other)
  Sender: FDA-Public Use
  Company Number: None

PATIENT
  Age: 73 Year
  Sex: Female

DRUGS (11)
  1. NINLARO [Suspect]
     Active Substance: IXAZOMIB
     Indication: PLASMA CELL MYELOMA
     Dosage: NINLARO 4MG - 1 PO QW X 3W - PO
     Route: 048
  2. OMEPRAZOLE. [Concomitant]
     Active Substance: OMEPRAZOLE
  3. REVLIMID [Concomitant]
     Active Substance: LENALIDOMIDE
  4. ACYCLOVIR. [Concomitant]
     Active Substance: ACYCLOVIR
  5. ATIVAN [Concomitant]
     Active Substance: LORAZEPAM
  6. ASPIRIN. [Concomitant]
     Active Substance: ASPIRIN
  7. ZOMETA [Concomitant]
     Active Substance: ZOLEDRONIC ACID
  8. MULTIVITAMIN [Concomitant]
     Active Substance: VITAMINS
  9. ESTER C RED HEART PILL [Concomitant]
  10. CLARITIN [Concomitant]
     Active Substance: LORATADINE
  11. ATENOLOL. [Concomitant]
     Active Substance: ATENOLOL

REACTIONS (2)
  - Nausea [None]
  - Laboratory test abnormal [None]
